FAERS Safety Report 17676170 (Version 2)
Quarter: 2020Q2

REPORT INFORMATION
  Report Type: Spontaneous
  Country: IT (occurrence: IT)
  Receive Date: 20200416
  Receipt Date: 20200417
  Transmission Date: 20200714
  Serious: Yes (Other)
  Sender: FDA-Public Use
  Company Number: IT-TEVA-2020-IT-1224743

PATIENT
  Age: 44 Year
  Sex: Female

DRUGS (4)
  1. BEDROCAN [Interacting]
     Active Substance: CANNABIS SATIVA FLOWERING TOP
     Indication: NEURALGIA
     Dosage: FORMULATION: OIL; NABIXIMOLS: 10 %, BEDROCAN OIL, MAGISTRAL PREPARATION
     Route: 048
  2. MAGNESIUM [Concomitant]
     Active Substance: MAGNESIUM
     Route: 065
  3. PREGABALIN. [Suspect]
     Active Substance: PREGABALIN
     Indication: NEURALGIA
     Route: 065
  4. DULOXETINE. [Concomitant]
     Active Substance: DULOXETINE
     Route: 065

REACTIONS (4)
  - Tachyarrhythmia [Recovered/Resolved]
  - Dysphoria [Recovered/Resolved]
  - Dizziness [Recovered/Resolved]
  - Drug interaction [Recovered/Resolved]
